FAERS Safety Report 10740073 (Version 1)
Quarter: 2015Q1

REPORT INFORMATION
  Report Type: Spontaneous
  Country: US (occurrence: US)
  Receive Date: 20150127
  Receipt Date: 20150127
  Transmission Date: 20150721
  Serious: Yes (Other)
  Sender: FDA-Public Use
  Company Number: US-JNJFOC-20150111639

PATIENT
  Age: 33 Year
  Sex: Male

DRUGS (2)
  1. TYLENOL EXTRA STRENGTH [Suspect]
     Active Substance: ACETAMINOPHEN
     Indication: PRODUCT USED FOR UNKNOWN INDICATION
     Dosage: DAILY; PATIENT TOOK APPROXIMATELY 4100MG OF APAP CONTAINING DRUGS (APAP AND APAP HYDROCODONE)
     Route: 048
  2. HYDROCODONE BITARTRATE AND ACETAMINOPHEN [Suspect]
     Active Substance: ACETAMINOPHEN\HYDROCODONE BITARTRATE
     Indication: PRODUCT USED FOR UNKNOWN INDICATION
     Dosage: 5/325 MG; TOOK APPROXIMATELY 4100MG OF APAP CONTAINING DRUGS (APAP AND APAP HYDROCODONE)
     Route: 065

REACTIONS (4)
  - Drug administration error [Unknown]
  - Abdominal pain [Unknown]
  - Diarrhoea [Unknown]
  - Accidental overdose [Unknown]
